FAERS Safety Report 5236581-8 (Version None)
Quarter: 2007Q1

REPORT INFORMATION
  Report Type: 
  Country: None (occurrence: None)
  Receive Date: 20070208
  Receipt Date: 20070125
  Transmission Date: 20070707
  Serious: Yes (Other)
  Sender: FDA-Public Use
  Company Number: 2007-00404

PATIENT
  Sex: Male

DRUGS (3)
  1. LOVASTATIN [Suspect]
     Indication: DYSLIPIDAEMIA
     Dosage: 40 MG, DAILY,ORAL
     Route: 048
     Dates: start: 20050101
  2. ALEVE [Concomitant]
  3. MULTIVITAMINS (ERGOCALCIFEROL, RETINOL, RIBOFLAVIN, NICOTINAMIDE, PANT [Concomitant]

REACTIONS (2)
  - BLADDER CANCER RECURRENT [None]
  - MIDDLE INSOMNIA [None]
